FAERS Safety Report 10571403 (Version 1)
Quarter: 2014Q4

REPORT INFORMATION
  Report Type: Spontaneous
  Country: US (occurrence: US)
  Receive Date: 20141107
  Receipt Date: 20141107
  Transmission Date: 20150529
  Serious: Yes (Disabling, Other)
  Sender: FDA-Public Use
  Company Number: US-MERCK-1411USA000616

PATIENT
  Sex: Female

DRUGS (1)
  1. FOSAMAX [Suspect]
     Active Substance: ALENDRONATE SODIUM
     Dosage: UNK
     Route: 048
     Dates: start: 200001, end: 201012

REACTIONS (3)
  - Femur fracture [Not Recovered/Not Resolved]
  - Multiple injuries [None]
  - Emotional disorder [None]

NARRATIVE: CASE EVENT DATE: 201012
